FAERS Safety Report 8247091-8 (Version None)
Quarter: 2012Q1

REPORT INFORMATION
  Report Type: 
  Country: None (occurrence: None)
  Receive Date: 20120330
  Receipt Date: 20120315
  Transmission Date: 20120608
  Serious: Yes (Hospitalization)
  Sender: FDA-Public Use
  Company Number: FR-ROCHE-1049749

PATIENT
  Sex: Male

DRUGS (9)
  1. MABTHERA [Suspect]
     Indication: B-CELL LYMPHOMA
     Route: 042
     Dates: start: 20110329, end: 20110912
  2. CYCLOPHOSPHAMIDE [Suspect]
     Indication: B-CELL LYMPHOMA
     Route: 042
     Dates: start: 20110329, end: 20110725
  3. CELECTOL [Concomitant]
  4. COVERSYL NOVUM [Concomitant]
  5. PLAVIX [Concomitant]
  6. FLECTOR (FRANCE) [Concomitant]
  7. ATORVASTATIN [Concomitant]
  8. VEPESID [Suspect]
     Indication: B-CELL LYMPHOMA
     Route: 042
     Dates: start: 20110329, end: 20110725
  9. DOXORUBICIN HCL [Suspect]
     Indication: B-CELL LYMPHOMA
     Route: 042
     Dates: start: 20110329, end: 20110725

REACTIONS (2)
  - B-CELL LYMPHOMA [None]
  - LUNG ADENOCARCINOMA [None]
